FAERS Safety Report 4746636-X (Version None)
Quarter: 2005Q3

REPORT INFORMATION
  Report Type: 
  Country: None (occurrence: None)
  Receive Date: 20050815
  Receipt Date: 20050601
  Transmission Date: 20060218
  Serious: Yes (Death)
  Sender: FDA-Public Use
  Company Number: S05-CAN-02851-01

PATIENT
  Age: 60 Year
  Sex: Female

DRUGS (14)
  1. CELEXA [Suspect]
  2. CLONAZEPAM [Suspect]
  3. CODEINE [Suspect]
  4. DIPHENHYDRAMINE HCL [Suspect]
  5. MORPHINE [Suspect]
  6. AVAPRO [Concomitant]
  7. DOMPERIDONE [Concomitant]
  8. INDERAL [Concomitant]
  9. LIPITOR [Concomitant]
  10. METHOPRAZINE [Concomitant]
  11. OXYCODONE HCL [Concomitant]
  12. PENNSAID (DICLOFENAC) [Concomitant]
  13. TRIAMCINOLONE [Concomitant]
  14. VALSARTAN [Concomitant]

REACTIONS (2)
  - ACCIDENTAL OVERDOSE [None]
  - DRUG DEPENDENCE [None]
